FAERS Safety Report 20539012 (Version 1)
Quarter: 2022Q1

REPORT INFORMATION
  Report Type: Spontaneous
  Country: DE (occurrence: DE)
  Receive Date: 20220302
  Receipt Date: 20220302
  Transmission Date: 20220423
  Serious: Yes (Hospitalization)
  Sender: FDA-Public Use
  Company Number: DE-ADRED-07174-01

PATIENT
  Age: 82 Year
  Sex: Female
  Weight: 115 kg

DRUGS (7)
  1. XARELTO [Interacting]
     Active Substance: RIVAROXABAN
     Indication: Product used for unknown indication
     Dosage: 15 MG, OM
     Route: 048
  2. DULOXETINE [Interacting]
     Active Substance: DULOXETINE
     Indication: Product used for unknown indication
     Dosage: 20 MG, PRN
     Route: 048
  3. BACLOFEN [Concomitant]
     Active Substance: BACLOFEN
     Dosage: 10 MG, QD
     Route: 048
  4. BACLOFEN [Concomitant]
     Active Substance: BACLOFEN
     Dosage: 25 MG, OM
     Route: 048
  5. RAMIPRIL [Concomitant]
     Active Substance: RAMIPRIL
     Dosage: 5 MG, OM
     Route: 048
  6. PANTOPRAZOLE [Concomitant]
     Active Substance: PANTOPRAZOLE
     Dosage: 40 MG, OM
     Route: 048
  7. GABAPENTIN [Concomitant]
     Active Substance: GABAPENTIN
     Dosage: 600 MG, TID
     Route: 048

REACTIONS (3)
  - Dyspnoea [Recovering/Resolving]
  - Labelled drug-drug interaction medication error [Unknown]
  - Blood test abnormal [Recovering/Resolving]
